FAERS Safety Report 7929434-5 (Version None)
Quarter: 2011Q4

REPORT INFORMATION
  Report Type: 
  Country: None (occurrence: None)
  Receive Date: 20111121
  Receipt Date: 20111114
  Transmission Date: 20120403
  Serious: No
  Sender: FDA-Public Use
  Company Number: US-BIOGENIDEC-2011BI044014

PATIENT
  Sex: Female

DRUGS (4)
  1. AVONEX [Concomitant]
     Indication: MULTIPLE SCLEROSIS
     Route: 030
     Dates: start: 20080401
  2. TYSABRI [Suspect]
     Route: 042
     Dates: start: 20070905, end: 20080305
  3. AVONEX [Concomitant]
     Route: 030
     Dates: start: 20021001
  4. TYSABRI [Suspect]
     Indication: MULTIPLE SCLEROSIS
     Route: 042
     Dates: start: 20111109

REACTIONS (4)
  - BACK PAIN [None]
  - NERVE INJURY [None]
  - PAIN [None]
  - MUSCULOSKELETAL STIFFNESS [None]
